FAERS Safety Report 5668164-X (Version None)
Quarter: 2008Q1

REPORT INFORMATION
  Report Type: 
  Country: None (occurrence: None)
  Receive Date: 20080315
  Receipt Date: 20080204
  Transmission Date: 20080703
  Serious: No
  Sender: FDA-Public Use
  Company Number: US-ABBOTT-08P-163-0438681-00

PATIENT
  Sex: Female

DRUGS (3)
  1. HUMIRA [Suspect]
     Indication: RHEUMATOID ARTHRITIS
     Dates: start: 20080111, end: 20080124
  2. HUMIRA [Suspect]
     Dates: start: 20080201, end: 20080215
  3. HUMIRA [Suspect]
     Dates: start: 20080218

REACTIONS (6)
  - INJECTION SITE NODULE [None]
  - INJECTION SITE PAIN [None]
  - INJECTION SITE REACTION [None]
  - SKIN HYPERTROPHY [None]
  - SKIN ULCER [None]
  - UPPER RESPIRATORY TRACT INFECTION [None]
